FAERS Safety Report 6793252-4 (Version None)
Quarter: 2010Q2

REPORT INFORMATION
  Report Type: 
  Country: None (occurrence: None)
  Receive Date: 20100624
  Receipt Date: 20091102
  Transmission Date: 20101027
  Serious: Yes (Death)
  Sender: FDA-Public Use
  Company Number: US-MYLANLABS-2009S1017150

PATIENT
  Age: 67 Year
  Sex: Male

DRUGS (23)
  1. CLOZAPINE [Suspect]
     Indication: AGITATION
     Route: 048
     Dates: start: 20060101, end: 20090901
  2. CLOZAPINE [Suspect]
     Indication: ANXIETY
     Route: 048
     Dates: start: 20060101, end: 20090901
  3. CLOZAPINE [Suspect]
     Route: 048
     Dates: start: 20060101, end: 20090901
  4. CLOZAPINE [Suspect]
     Route: 048
     Dates: start: 20060101, end: 20090901
  5. CARBIDOPA AND LEVODOPA [Concomitant]
     Route: 048
  6. SEROQUEL [Concomitant]
     Route: 048
  7. LACTULOSE [Concomitant]
     Route: 048
  8. TIMOLOL MALEATE [Concomitant]
     Route: 047
  9. LAMOTRIGINE [Concomitant]
     Route: 048
  10. ASPIRIN [Concomitant]
     Route: 048
  11. VITAMIN TAB [Concomitant]
     Route: 048
  12. SERTRALINE HCL [Concomitant]
     Route: 048
  13. SERTRALINE HCL [Concomitant]
     Route: 048
  14. FERROUS SULFATE TAB [Concomitant]
     Route: 048
  15. COMTAN [Concomitant]
     Route: 048
  16. SENNA S [Concomitant]
     Route: 048
  17. DOCUSATE SODIUM [Concomitant]
     Route: 048
  18. FLOMAX [Concomitant]
     Route: 048
  19. ARICEPT [Concomitant]
     Route: 048
  20. TRAZODONE HYDROCHLORIDE [Concomitant]
     Route: 048
  21. CLONAZEPAM [Concomitant]
     Route: 048
  22. BALMEX /01383801/ [Concomitant]
     Route: 061
  23. ACETAMINOPHEN [Concomitant]
     Route: 048

REACTIONS (1)
  - DEATH [None]
